FAERS Safety Report 19092147 (Version 1)
Quarter: 2021Q2

REPORT INFORMATION
  Report Type: Spontaneous
  Country: IN (occurrence: IN)
  Receive Date: 20210405
  Receipt Date: 20210405
  Transmission Date: 20210717
  Serious: Yes (Life-Threatening, Hospitalization, Other)
  Sender: FDA-Public Use
  Company Number: IN-ACCORD-221172

PATIENT
  Sex: Male

DRUGS (6)
  1. METHOTREXATE. [Suspect]
     Active Substance: METHOTREXATE
     Indication: PSORIASIS
     Route: 048
  2. METHOTREXATE. [Suspect]
     Active Substance: METHOTREXATE
     Indication: PSORIASIS
     Dosage: CUMULATIVE DOSE OF 150 MG IN 10 DAYS
     Route: 048
  3. GENTAMICIN/BETAMETHASONE [Concomitant]
     Active Substance: BETAMETHASONE\GENTAMICIN
     Route: 061
  4. FOLIC ACID. [Concomitant]
     Active Substance: FOLIC ACID
  5. CLOBETASOL\CLOBETASOL PROPIONATE [Concomitant]
     Active Substance: CLOBETASOL\CLOBETASOL PROPIONATE
     Route: 061
  6. DESLORATADINE. [Concomitant]
     Active Substance: DESLORATADINE

REACTIONS (7)
  - Drug hypersensitivity [Recovered/Resolved]
  - Leukopenia [Recovered/Resolved]
  - Thrombocytopenia [Recovered/Resolved]
  - Renal impairment [Recovered/Resolved]
  - Liver function test increased [Recovered/Resolved]
  - Inappropriate schedule of product administration [Recovered/Resolved]
  - Stevens-Johnson syndrome [Recovered/Resolved]
